FAERS Safety Report 18238502 (Version 2)
Quarter: 2020Q3

REPORT INFORMATION
  Report Type: Spontaneous
  Country: US (occurrence: US)
  Receive Date: 20200907
  Receipt Date: 20200909
  Transmission Date: 20201103
  Serious: No
  Sender: FDA-Public Use
  Company Number: US-PFIZER INC-2020344400

PATIENT
  Age: 67 Year
  Sex: Female
  Weight: 69.85 kg

DRUGS (2)
  1. LETROZOLE. [Suspect]
     Active Substance: LETROZOLE
     Indication: BREAST CANCER METASTATIC
     Dosage: UNK
  2. IBRANCE [Suspect]
     Active Substance: PALBOCICLIB
     Indication: BREAST CANCER METASTATIC
     Dosage: 125 MG, CYCLIC (21 DAYS THEN STOP FOR 7 OR 10 DAYS)
     Route: 048

REACTIONS (3)
  - Perioral dermatitis [Unknown]
  - Urinary tract infection [Unknown]
  - Immune system disorder [Unknown]
